FAERS Safety Report 5447623-9 (Version None)
Quarter: 2007Q3

REPORT INFORMATION
  Report Type: 
  Country: None (occurrence: None)
  Receive Date: 20070910
  Receipt Date: 20070830
  Transmission Date: 20080115
  Serious: Yes (Hospitalization)
  Sender: FDA-Public Use
  Company Number: GB-ROCHE-514651

PATIENT
  Age: 29 Year
  Sex: Female
  Weight: 138 kg

DRUGS (16)
  1. ORLISTAT [Suspect]
     Indication: OBESITY
     Route: 048
     Dates: start: 20070629, end: 20070811
  2. EFFEXOR [Concomitant]
     Indication: DEPRESSION
     Route: 048
  3. QUETIAPINE FUMARATE [Concomitant]
     Indication: DEPRESSION
     Dosage: AT NIGHT. DRUG REPORTED AS QUIETPINE.
     Route: 048
  4. VALPROATE SODIUM [Concomitant]
     Indication: DEPRESSION
     Dosage: AT NIGHT. DRUG REPORTED AS SODIUM VALPORATE.
     Route: 048
  5. TRAZODONE HCL [Concomitant]
     Indication: DEPRESSION
     Dosage: AT NIGHT.
     Route: 048
  6. ZOPICLONE [Concomitant]
     Indication: DEPRESSION
     Dosage: AT NIGHT.
     Route: 048
  7. CLONAZEPAM [Concomitant]
     Indication: DEPRESSION
     Route: 048
  8. PHYLLOCONTIN [Concomitant]
     Indication: ASTHMA
     Route: 048
  9. MONTELUKAST SODIUM [Concomitant]
     Indication: ASTHMA
     Dosage: AT NIGHT. DRUG REPORTED AS MONTEKAST.
     Route: 048
  10. PREDNISOLONE [Concomitant]
     Indication: ASTHMA
     Route: 048
  11. SIMBICORT [Concomitant]
     Indication: ASTHMA
  12. COMBIVENT [Concomitant]
     Indication: ASTHMA
  13. OMEPRAZOLE [Concomitant]
     Indication: ILL-DEFINED DISORDER
     Route: 048
  14. FRUSEMIDE [Concomitant]
     Indication: FLUID RETENTION
     Route: 048
  15. OXYBUTYNIN CHLORIDE [Concomitant]
     Dosage: TRADE REPORTED AS LYRINEL.
     Route: 048
  16. 1 CONCOMITANT DRUG [Concomitant]
     Dosage: DRUG REPORTED AS NABEVORINE.
     Route: 048

REACTIONS (3)
  - ASTHMA [None]
  - DEPRESSION [None]
  - STRESS [None]
